FAERS Safety Report 7925342-4 (Version None)
Quarter: 2011Q4

REPORT INFORMATION
  Report Type: 
  Country: None (occurrence: None)
  Receive Date: 20111118
  Receipt Date: 20110405
  Transmission Date: 20120403
  Serious: No
  Sender: FDA-Public Use
  Company Number: US-AMGEN-USASP2011017989

PATIENT
  Age: 68 Year
  Sex: Female

DRUGS (11)
  1. VITAMIN E                          /00110501/ [Concomitant]
     Dosage: 1000 IU, UNK
  2. AVELOX [Concomitant]
     Dosage: 400 MG, UNK
  3. AMBIEN [Concomitant]
     Dosage: 10 MG, UNK
  4. BENZONATATE [Concomitant]
     Dosage: 100 MG, UNK
  5. PROAIR HFA [Concomitant]
  6. PREDNISONE TAB [Concomitant]
     Dosage: 1 MG, UNK
  7. KLOR-CON [Concomitant]
  8. MULTIVITAMIN                       /00097801/ [Concomitant]
  9. ENBREL [Suspect]
     Indication: PRODUCT USED FOR UNKNOWN INDICATION
     Dosage: 50 MG, QWK
     Route: 058
  10. PLAQUENIL [Concomitant]
     Dosage: 200 MG, UNK
  11. ZANAFLEX [Concomitant]
     Dosage: 2 MG, UNK

REACTIONS (1)
  - PNEUMONIA [None]
